FAERS Safety Report 17280732 (Version 4)
Quarter: 2021Q2

REPORT INFORMATION
  Report Type: Spontaneous
  Country: US (occurrence: US)
  Receive Date: 20200117
  Receipt Date: 20210503
  Transmission Date: 20210716
  Serious: Yes (Hospitalization, Other)
  Sender: FDA-Public Use
  Company Number: US-009507513-2001USA005015

PATIENT
  Age: 3 Year
  Sex: Male
  Weight: 12 kg

DRUGS (32)
  1. PREDNISONE. [Suspect]
     Active Substance: PREDNISONE
     Dosage: 1.8 MILLIGRAM, 2 IN 1 DAY
     Route: 048
     Dates: start: 20190927
  2. AMLODIPINE [Concomitant]
     Active Substance: AMLODIPINE BESYLATE
     Indication: BLOOD PRESSURE ABNORMAL
     Dosage: 3 MILLIGRAM, 2 IN 1 D
     Route: 048
  3. PENICILLIN VK [Concomitant]
     Active Substance: PENICILLIN V POTASSIUM
     Indication: INFECTION PROPHYLAXIS
     Dosage: 250 MILLIGRAM, 2 IN 1 DAY
     Route: 048
  4. ACYCLOVIR. [Concomitant]
     Active Substance: ACYCLOVIR
     Indication: PROPHYLAXIS
     Dosage: 120 MILLIGRAM, 2 IN 1 DAY
     Route: 048
  5. DESONIDE. [Concomitant]
     Active Substance: DESONIDE
     Indication: SKIN DISORDER
     Dosage: 0.05 PERCENT, BID TO FACE, GROIN AND FOLDS
     Route: 061
  6. PRILOSEC [Concomitant]
     Active Substance: OMEPRAZOLE MAGNESIUM
     Indication: GASTRITIS PROPHYLAXIS
     Dosage: 5 MILLILITER, BID (2 IN 1 D)
  7. NOXAFIL [Suspect]
     Active Substance: POSACONAZOLE
     Indication: FUNGAL INFECTION
     Dosage: 52 MILLIGRAM, 4 IN A DAY
     Route: 048
  8. PREDNISONE. [Suspect]
     Active Substance: PREDNISONE
     Indication: CHRONIC GRAFT VERSUS HOST DISEASE
     Dosage: 3 MILLIGRAM, BID
     Route: 048
     Dates: start: 20170901
  9. CARBAMIDE PEROXIDE [Concomitant]
     Active Substance: CARBAMIDE PEROXIDE
     Indication: EXCESSIVE CERUMEN PRODUCTION
     Dosage: 5 GTT DROPS, QD, BOTH EARS, QPM
  10. TRIAMCINOLONE [Concomitant]
     Active Substance: TRIAMCINOLONE
     Indication: SKIN DISORDER
     Dosage: 0.1 PERCENT, BID TO TRUNK, 1 ARMS, LEGS
     Route: 061
  11. KEFLEX [Concomitant]
     Active Substance: CEPHALEXIN
     Indication: INFECTION PROPHYLAXIS
     Dosage: 3.2 MILLILITER, BID (2 IN 1 D)
  12. KENALOG [Concomitant]
     Active Substance: TRIAMCINOLONE ACETONIDE
     Indication: SKIN DISORDER
     Dosage: UNK, BID
     Route: 061
  13. BICITRA [Concomitant]
     Active Substance: CITRIC ACID, 1-STEARYL ESTER\SODIUM CITRATE
     Indication: ELECTROLYTE IMBALANCE
     Dosage: UNK, BID
  14. NOXAFIL [Suspect]
     Active Substance: POSACONAZOLE
     Indication: FUNGAL INFECTION
     Dosage: 1.3 MILLILITER, QID
     Route: 048
  15. DIPHENHYDRAMINE. [Concomitant]
     Active Substance: DIPHENHYDRAMINE
     Indication: PRURITUS
     Dosage: 12 MILLIGRAM, Q6H, PRN
     Route: 048
  16. PONARIS (FLUCONAZOLE) [Concomitant]
     Active Substance: FLUCONAZOLE
     Indication: EPISTAXIS
     Dosage: UNK, BID, PRN
     Route: 045
  17. PROTOPIC [Concomitant]
     Active Substance: TACROLIMUS
     Indication: SKIN DISORDER
     Dosage: 0.1 PERCENT, 2 IN 1 DAY
     Route: 061
  18. CITRIC ACID (+) SODIUM CITRATE [Concomitant]
     Active Substance: CITRIC ACID MONOHYDRATE\SODIUM CITRATE
     Indication: ELECTROLYTE SUBSTITUTION THERAPY
     Dosage: 5.5 MILLIEQUIVALENT, 2 IN 1 DAY
     Route: 048
  19. BENADRYL [Concomitant]
     Active Substance: DIPHENHYDRAMINE HYDROCHLORIDE
     Indication: PRURITUS
     Dosage: 4.8 MILLILITER, Q6H, PRN
  20. DEBROX [Concomitant]
     Active Substance: CARBAMIDE PEROXIDE
     Indication: EXCESSIVE CERUMEN PRODUCTION
     Dosage: 5 GTT DROPS, IN BOTH EARS EVERY NIGHT
  21. IBRUTINIB [Suspect]
     Active Substance: IBRUTINIB
     Dosage: 42 MILLIGRAM, QD (1 IN 1 D)
     Route: 048
     Dates: start: 20190702
  22. PREDNISONE. [Suspect]
     Active Substance: PREDNISONE
     Dosage: 4.5 MILLIGRAM, 2 IN 1 DAY
     Route: 048
     Dates: start: 20190207
  23. OMEPRAZOLE. [Concomitant]
     Active Substance: OMEPRAZOLE
     Indication: PROPHYLAXIS
     Dosage: 10 MILLIGRAM, 2 IN 1 DAY
     Route: 048
  24. CHOLECALCIFEROL [Concomitant]
     Active Substance: CHOLECALCIFEROL
     Indication: SUPPLEMENTATION THERAPY
     Dosage: 1000 UNIT, 1 IN 2 DAYS
     Route: 048
  25. AQUAPHOR (LANOLIN ALCOHOLS (+) MINERAL OIL (+) PETROLATUM) [Concomitant]
     Indication: SKIN DISORDER
     Dosage: UNK, PRN
     Route: 061
  26. HYDROCORTISONE. [Concomitant]
     Active Substance: HYDROCORTISONE
     Indication: STRESS
     Dosage: UNK
     Dates: start: 20190522
  27. PENTAMIDINE ISETHIONATE. [Concomitant]
     Active Substance: PENTAMIDINE ISETHIONATE
     Dosage: MONTHLY DOSES THAT FLUCTUATED FROM 42?44MG (IN 2017) AND 43?48 (IN 2019)
     Route: 042
     Dates: start: 20170522
  28. IBRUTINIB [Suspect]
     Active Substance: IBRUTINIB
     Indication: CHRONIC GRAFT VERSUS HOST DISEASE
     Dosage: 0.6 MILLILITER, 1 IN 1 DAY
     Route: 048
     Dates: start: 20190417
  29. IBRUTINIB [Suspect]
     Active Substance: IBRUTINIB
     Dosage: 42 MILLIGRAM, QD (1 IN 1 D)
     Route: 048
     Dates: start: 20190417, end: 20190623
  30. INFLIXIMAB [Suspect]
     Active Substance: INFLIXIMAB
     Dosage: UNK
  31. BACTRIM [Concomitant]
     Active Substance: SULFAMETHOXAZOLE\TRIMETHOPRIM
     Indication: PROPHYLAXIS
     Dosage: 200?40 MG, BID, ONLY ON SATURDAY AND SUNDAY
     Route: 048
  32. SODIUM PHOSPHATE, DIBASIC [Concomitant]
     Active Substance: SODIUM PHOSPHATE, DIBASIC
     Indication: ELECTROLYTE SUBSTITUTION THERAPY
     Dosage: 20 MILLIEQUIVALENT, 2 IN 1 DAY
     Route: 048

REACTIONS (19)
  - Pneumocystis jirovecii pneumonia [Recovered/Resolved]
  - Bacterial infection [Recovered/Resolved]
  - Restlessness [Unknown]
  - Hypoxia [Recovered/Resolved]
  - Hypoxia [Unknown]
  - Tachycardia [Unknown]
  - Vascular device infection [Recovered/Resolved]
  - Lung opacity [Unknown]
  - Heart rate increased [Unknown]
  - Catheter site cellulitis [Recovered/Resolved]
  - Irritability [Unknown]
  - Pyrexia [Unknown]
  - Vascular device infection [Recovered/Resolved]
  - Pyrexia [Recovered/Resolved]
  - Oxygen saturation abnormal [Unknown]
  - Staphylococcal infection [Recovered/Resolved]
  - Lung opacity [Unknown]
  - Oxygen saturation abnormal [Recovered/Resolved]
  - Pneumonia [Recovered/Resolved]

NARRATIVE: CASE EVENT DATE: 201905
